FAERS Safety Report 12643016 (Version 1)
Quarter: 2016Q3

REPORT INFORMATION
  Report Type: Report from Study
  Country: US (occurrence: US)
  Receive Date: 20160811
  Receipt Date: 20160811
  Transmission Date: 20161109
  Serious: Yes (Hospitalization, Other)
  Sender: FDA-Public Use
  Company Number: US-ROCHE-774217

PATIENT
  Age: 76 Year
  Sex: Male
  Weight: 87.1 kg

DRUGS (4)
  1. VISMODEGIB [Suspect]
     Active Substance: VISMODEGIB
     Indication: ADENOCARCINOMA PANCREAS
     Dosage: FREQEUNCY : QD, CYCLE=28 DAYS
     Route: 048
     Dates: start: 20110207, end: 20110404
  2. ERLOTINIB [Suspect]
     Active Substance: ERLOTINIB
     Indication: ADENOCARCINOMA PANCREAS
     Dosage: FREQEUNCY : QD, CYCLE=28 DAYS
     Route: 048
     Dates: start: 20110207, end: 20110419
  3. VISMODEGIB [Suspect]
     Active Substance: VISMODEGIB
     Dosage: LAST DATE PRIOR TO SAE ON 04 APRIL 2011.
     Route: 048
  4. ERLOTINIB [Suspect]
     Active Substance: ERLOTINIB
     Dosage: LAST DOSE PRIOR TO SAE ON 04 APRIL 2011.
     Route: 048

REACTIONS (12)
  - Blood bilirubin increased [Recovering/Resolving]
  - Pain in extremity [Unknown]
  - Ileus [Recovering/Resolving]
  - Lipase increased [Recovering/Resolving]
  - Pancreatitis [Recovering/Resolving]
  - Blood alkaline phosphatase increased [Not Recovered/Not Resolved]
  - Abdominal pain [Unknown]
  - Embolism [Recovering/Resolving]
  - Lipase increased [Unknown]
  - Embolism [Unknown]
  - Abdominal pain [Recovering/Resolving]
  - Pancreatitis [Unknown]

NARRATIVE: CASE EVENT DATE: 20110419
